FAERS Safety Report 20662119 (Version 1)
Quarter: 2022Q2

REPORT INFORMATION
  Report Type: Spontaneous
  Country: GB (occurrence: GB)
  Receive Date: 20220401
  Receipt Date: 20220401
  Transmission Date: 20220721
  Serious: No
  Sender: FDA-Public Use
  Company Number: GB-Accord-229151

PATIENT

DRUGS (1)
  1. QUETIAPINE FUMARATE [Suspect]
     Active Substance: QUETIAPINE FUMARATE
     Indication: Borderline personality disorder
     Dosage: 200MG MORNING AND LUNCHTIME, 400MG AT NIGHT
     Route: 065

REACTIONS (3)
  - Palpitations [Unknown]
  - Off label use [Unknown]
  - Prescribed overdose [Unknown]
